FAERS Safety Report 8801810 (Version 1)
Quarter: 2012Q4

REPORT INFORMATION
  Report Type: 
  Country: US (occurrence: US)
  Receive Date: 20120921
  Receipt Date: 20120921
  Transmission Date: 20130627
  Serious: No
  Sender: FDA-Public Use
  Company Number: US-PFIZER INC-2012233546

PATIENT
  Sex: Female

DRUGS (1)
  1. LYRICA [Suspect]
     Dosage: 100 mg, UNK

REACTIONS (4)
  - Intentional drug misuse [Unknown]
  - Dizziness [Unknown]
  - Balance disorder [Unknown]
  - Vomiting [Unknown]
